FAERS Safety Report 6124851-0 (Version None)
Quarter: 2009Q1

REPORT INFORMATION
  Report Type: 
  Country: None (occurrence: None)
  Receive Date: 20090319
  Receipt Date: 20090309
  Transmission Date: 20090719
  Serious: Yes (Hospitalization, Other)
  Sender: FDA-Public Use
  Company Number: IT-PFIZER INC-2009159944

PATIENT

DRUGS (5)
  1. CELEBREX [Suspect]
     Indication: OSTEOARTHRITIS
     Dosage: UNK
     Dates: start: 20081201, end: 20081222
  2. ALENDRONATE SODIUM [Concomitant]
     Dosage: UNK
  3. NEBIVOLOL HYDROCHLORIDE [Concomitant]
     Dosage: 5 MG, UNK
  4. ASPIRIN [Concomitant]
     Dosage: 100 MG, UNK
  5. LOVASTATIN [Concomitant]
     Dosage: 20 MG, UNK

REACTIONS (3)
  - LEFT VENTRICULAR FAILURE [None]
  - MYOCARDIAL INFARCTION [None]
  - PULMONARY OEDEMA [None]
